FAERS Safety Report 10181478 (Version 1)
Quarter: 2014Q2

REPORT INFORMATION
  Report Type: Spontaneous
  Country: US (occurrence: US)
  Receive Date: 20140519
  Receipt Date: 20140519
  Transmission Date: 20141212
  Serious: Yes (Other)
  Sender: FDA-Public Use
  Company Number: US-PFIZER INC-2014133775

PATIENT
  Sex: Female

DRUGS (2)
  1. LYRICA [Suspect]
     Indication: TRIGEMINAL NEURALGIA
     Dosage: UNK (ONCE A DAY)
  2. LYRICA [Suspect]
     Dosage: 1 DF, SINGLE (TOOK ONE THIS MORNING)

REACTIONS (3)
  - Sciatica [Recovered/Resolved]
  - Drug ineffective [Unknown]
  - Dizziness [Unknown]
